FAERS Safety Report 19686430 (Version 1)
Quarter: 2021Q3

REPORT INFORMATION
  Report Type: Report from Study
  Country: IT (occurrence: IT)
  Receive Date: 20210811
  Receipt Date: 20210811
  Transmission Date: 20211014
  Serious: Yes (Hospitalization)
  Sender: FDA-Public Use
  Company Number: IT-EISAI MEDICAL RESEARCH-EC-2021-097262

PATIENT
  Age: 48 Year
  Sex: Female

DRUGS (10)
  1. DAPAROX [Concomitant]
     Active Substance: PAROXETINE
  2. TIROSINT [Concomitant]
     Active Substance: LEVOTHYROXINE SODIUM
  3. DECADRON [Concomitant]
     Active Substance: DEXAMETHASONE
     Dates: start: 20210513
  4. DIBASE [Concomitant]
     Active Substance: CHOLECALCIFEROL
  5. SAFLUTAN [Concomitant]
     Active Substance: TAFLUPROST
  6. DEXAMETHASONE. [Concomitant]
     Active Substance: DEXAMETHASONE
  7. ESOMEPRAZOLE SODIUM. [Concomitant]
     Active Substance: ESOMEPRAZOLE SODIUM
  8. HALAVEN [Suspect]
     Active Substance: ERIBULIN MESYLATE
     Indication: BREAST CANCER
     Route: 042
     Dates: start: 20210513
  9. LORAZEPAM. [Concomitant]
     Active Substance: LORAZEPAM
  10. COSYREL [Concomitant]
     Active Substance: BISOPROLOL FUMARATE\PERINDOPRIL ARGININE

REACTIONS (4)
  - Loss of consciousness [Not Recovered/Not Resolved]
  - Febrile neutropenia [Not Recovered/Not Resolved]
  - Dyspnoea [Not Recovered/Not Resolved]
  - Pyrexia [Not Recovered/Not Resolved]

NARRATIVE: CASE EVENT DATE: 20210617
